FAERS Safety Report 25598090 (Version 2)
Quarter: 2025Q3

REPORT INFORMATION
  Report Type: Spontaneous
  Country: CA (occurrence: CA)
  Receive Date: 20250723
  Receipt Date: 20250918
  Transmission Date: 20251021
  Serious: Yes (Other)
  Sender: PFIZER
  Company Number: CA-PFIZER INC-PV202500051223

PATIENT
  Age: 61 Year
  Sex: Female
  Weight: 66.4 kg

DRUGS (2)
  1. ZIRABEV [Suspect]
     Active Substance: BEVACIZUMAB-BVZR
     Indication: Colorectal cancer metastatic
     Route: 042
     Dates: start: 20250416
  2. ZIRABEV [Suspect]
     Active Substance: BEVACIZUMAB-BVZR
     Indication: Colon cancer

REACTIONS (1)
  - Liver operation [Unknown]

NARRATIVE: CASE EVENT DATE: 20250101
